FAERS Safety Report 20607583 (Version 2)
Quarter: 2022Q1

REPORT INFORMATION
  Report Type: Report from Study
  Country: GB (occurrence: GB)
  Receive Date: 20220317
  Receipt Date: 20220324
  Transmission Date: 20220423
  Serious: Yes (Hospitalization, Other)
  Sender: FDA-Public Use
  Company Number: GB-ALXN-A202112194

PATIENT
  Sex: Female

DRUGS (7)
  1. SOLIRIS [Suspect]
     Active Substance: ECULIZUMAB
     Indication: Paroxysmal nocturnal haemoglobinuria
     Dosage: 600 MG, QW
     Route: 042
     Dates: start: 20120410, end: 20120430
  2. SOLIRIS [Suspect]
     Active Substance: ECULIZUMAB
     Dosage: 900 MG, Q2W
     Route: 042
     Dates: start: 20120504
  3. CEFTRIAXONE [Concomitant]
     Active Substance: CEFTRIAXONE
     Indication: Staphylococcal infection
     Dosage: UNK
     Route: 042
     Dates: end: 20220125
  4. DOCUSATE [Concomitant]
     Active Substance: DOCUSATE
     Indication: Product used for unknown indication
     Dosage: 200 MG, BID
     Route: 065
  5. FLUCLOX                            /00239102/ [Concomitant]
     Indication: Product used for unknown indication
     Dosage: 1 G, QDS
     Route: 048
     Dates: start: 20220126
  6. PENICILLIN                         /00000901/ [Concomitant]
     Indication: Product used for unknown indication
     Dosage: UNK
     Route: 065
  7. MORPHINE SULFATE [Concomitant]
     Active Substance: MORPHINE SULFATE
     Indication: Product used for unknown indication
     Dosage: 10 MG, BID
     Route: 065

REACTIONS (20)
  - Vascular device infection [Recovered/Resolved]
  - Packed red blood cell transfusion [Unknown]
  - Device related thrombosis [Unknown]
  - Neutropenia [Unknown]
  - Body temperature increased [Not Recovered/Not Resolved]
  - Staphylococcal infection [Unknown]
  - Lower respiratory tract infection [Unknown]
  - Chest pain [Unknown]
  - Pneumonia [Unknown]
  - Catheter site discharge [Not Recovered/Not Resolved]
  - Catheter site infection [Not Recovered/Not Resolved]
  - Wound complication [Unknown]
  - Catheter site extravasation [Not Recovered/Not Resolved]
  - Catheter site erythema [Not Recovered/Not Resolved]
  - Skin irritation [Not Recovered/Not Resolved]
  - Pain [Not Recovered/Not Resolved]
  - Pruritus [Not Recovered/Not Resolved]
  - Fatigue [Not Recovered/Not Resolved]
  - Dyspnoea [Not Recovered/Not Resolved]
  - Erythema [Not Recovered/Not Resolved]

NARRATIVE: CASE EVENT DATE: 20211001
